FAERS Safety Report 7694228-5 (Version None)
Quarter: 2011Q3

REPORT INFORMATION
  Report Type: 
  Country: None (occurrence: None)
  Receive Date: 20110819
  Receipt Date: 20110224
  Transmission Date: 20111222
  Serious: Yes (Hospitalization)
  Sender: FDA-Public Use
  Company Number: US-GLAXOSMITHKLINE-A0915703A

PATIENT
  Age: 73 Year
  Sex: Male

DRUGS (1)
  1. AVANDIA [Suspect]
     Indication: DIABETES MELLITUS
     Dosage: 8MG PER DAY
     Route: 048
     Dates: start: 20070309, end: 20100701

REACTIONS (7)
  - CEREBROVASCULAR ACCIDENT [None]
  - ATRIAL FIBRILLATION [None]
  - ARRHYTHMIA [None]
  - HYPERTENSION [None]
  - OEDEMA [None]
  - ARTERIOSCLEROSIS [None]
  - ARTERIAL THERAPEUTIC PROCEDURE [None]
